FAERS Safety Report 11141779 (Version 1)
Quarter: 2015Q2

REPORT INFORMATION
  Report Type: Spontaneous
  Country: US (occurrence: None)
  Receive Date: 20150526
  Receipt Date: 20150526
  Transmission Date: 20150821
  Serious: Yes (Other)
  Sender: FDA-Public Use
  Company Number: None

PATIENT
  Age: 5 Year
  Sex: Female
  Weight: 14.97 kg

DRUGS (2)
  1. TOPAMAX [Suspect]
     Active Substance: TOPIRAMATE
     Indication: SEIZURE
     Dosage: 6 ML SUSPENDED FLUID
     Route: 048
     Dates: start: 20150513, end: 20150525
  2. FIBER GUMMIES [Concomitant]

REACTIONS (5)
  - Abnormal dreams [None]
  - Anxiety [None]
  - Fear [None]
  - Fatigue [None]
  - Visual impairment [None]

NARRATIVE: CASE EVENT DATE: 20150525
